FAERS Safety Report 17631328 (Version 2)
Quarter: 2020Q2

REPORT INFORMATION
  Report Type: Report from Study
  Country: None (occurrence: US)
  Receive Date: 20200406
  Receipt Date: 20200422
  Transmission Date: 20200713
  Serious: No
  Sender: FDA-Public Use
  Company Number: US-ABBVIE-20K-163-3346489-00

PATIENT
  Sex: Female

DRUGS (2)
  1. HUMIRA [Suspect]
     Active Substance: ADALIMUMAB
     Indication: PSORIASIS
     Route: 058
     Dates: start: 20180724, end: 2019
  2. SKYRIZI [Suspect]
     Active Substance: RISANKIZUMAB-RZAA
     Indication: PSORIASIS
     Route: 058
     Dates: start: 20191029

REACTIONS (7)
  - Nasal disorder [Unknown]
  - Hepatic function abnormal [Unknown]
  - Psoriasis [Not Recovered/Not Resolved]
  - Blood disorder [Unknown]
  - Drug ineffective [Unknown]
  - Epistaxis [Unknown]
  - Rhinalgia [Unknown]

NARRATIVE: CASE EVENT DATE: 2020
